FAERS Safety Report 13394021 (Version 1)
Quarter: 2017Q1

REPORT INFORMATION
  Report Type: Spontaneous
  Country: US (occurrence: US)
  Receive Date: 20170331
  Receipt Date: 20170331
  Transmission Date: 20170429
  Serious: No
  Sender: FDA-Public Use
  Company Number: US-ALLERGAN-2016-001187

PATIENT
  Age: 82 Year
  Sex: Female
  Weight: 63.49 kg

DRUGS (4)
  1. ESTRACE [Suspect]
     Active Substance: ESTRADIOL
     Indication: VULVOVAGINAL DRYNESS
     Dosage: NOT EVEN HALF A FULL SYRINGE EACH TIME, TWICE
     Route: 067
     Dates: start: 201605, end: 20160529
  2. ESTRACE [Suspect]
     Active Substance: ESTRADIOL
     Indication: BLOOD OESTROGEN ABNORMAL
  3. LISINOPRIL. [Concomitant]
     Active Substance: LISINOPRIL
     Indication: BLOOD PRESSURE ABNORMAL
     Dosage: UNK UNK, QD
     Route: 065
  4. VITAMINS                           /90003601/ [Concomitant]
     Active Substance: VITAMINS
     Dosage: UNK UNK, UNKNOWN
     Route: 065

REACTIONS (2)
  - Vulvovaginal burning sensation [Recovered/Resolved]
  - Vulvovaginal pruritus [Recovered/Resolved]

NARRATIVE: CASE EVENT DATE: 201605
